FAERS Safety Report 21958161 (Version 3)
Quarter: 2023Q1

REPORT INFORMATION
  Report Type: Report from Study
  Country: US (occurrence: US)
  Receive Date: 20230206
  Receipt Date: 20230328
  Transmission Date: 20230418
  Serious: Yes (Hospitalization)
  Sender: FDA-Public Use
  Company Number: US-PFIZER INC-PV202300022222

PATIENT
  Age: 10 Year
  Sex: Male
  Weight: 40.8 kg

DRUGS (3)
  1. VINCRISTINE SULFATE [Suspect]
     Active Substance: VINCRISTINE SULFATE
     Indication: Leukaemia
     Dosage: 1.8 MG, ONCE
     Route: 042
     Dates: start: 20220728
  2. RUXOLITINIB [Suspect]
     Active Substance: RUXOLITINIB
     Indication: Leukaemia
     Dosage: 50 MG, 2X/DAY
     Route: 048
     Dates: start: 20220714
  3. DEXAMETHASONE [Suspect]
     Active Substance: DEXAMETHASONE
     Indication: Leukaemia
     Dosage: 6 MG, 2X/DAY
     Route: 048
     Dates: start: 20221215

REACTIONS (4)
  - Hypoxia [Recovered/Resolved]
  - BK virus infection [Recovered/Resolved]
  - Urinary tract infection [Recovered/Resolved]
  - Haematuria [Recovered/Resolved]

NARRATIVE: CASE EVENT DATE: 20230109
